FAERS Safety Report 5557706-0 (Version None)
Quarter: 2007Q4

REPORT INFORMATION
  Report Type: 
  Country: None (occurrence: None)
  Receive Date: 20071214
  Receipt Date: 20071207
  Transmission Date: 20080405
  Serious: Yes (Hospitalization, Other)
  Sender: FDA-Public Use
  Company Number: PHBS2007JP09265

PATIENT
  Age: 49 Year
  Sex: Female

DRUGS (3)
  1. VOLTAREN [Suspect]
     Indication: MUSCULOSKELETAL PAIN
     Route: 048
  2. PREDONINE [Concomitant]
     Indication: MUSCULOSKELETAL PAIN
  3. RHEUMATREX [Suspect]
     Indication: MUSCULOSKELETAL PAIN

REACTIONS (9)
  - ABDOMINAL PAIN UPPER [None]
  - ANOREXIA [None]
  - COMPRESSION FRACTURE [None]
  - DUODENAL STENOSIS [None]
  - EATING DISORDER [None]
  - FALL [None]
  - PEPTIC ULCER [None]
  - SURGERY [None]
  - WEIGHT DECREASED [None]
